FAERS Safety Report 14707267 (Version 3)
Quarter: 2018Q2

REPORT INFORMATION
  Report Type: Spontaneous
  Country: SE (occurrence: SE)
  Receive Date: 20180403
  Receipt Date: 20180509
  Transmission Date: 20180711
  Serious: Yes (Other)
  Sender: FDA-Public Use
  Company Number: SE-AXELLIA-001517

PATIENT
  Age: 42 Year
  Sex: Female

DRUGS (6)
  1. OXACILLIN [Interacting]
     Active Substance: OXACILLIN SODIUM
     Indication: INFECTION
  2. ENALAPRIL [Interacting]
     Active Substance: ENALAPRIL
     Indication: HYPERTENSION
  3. VANCOMYCIN [Suspect]
     Active Substance: VANCOMYCIN
     Indication: PNEUMONIA
  4. CARBOPLATIN. [Interacting]
     Active Substance: CARBOPLATIN
     Indication: NON-SMALL CELL LUNG CANCER
     Dosage: 703 MG DAILY DOSE
     Route: 042
  5. CIPROFLOXACIN. [Interacting]
     Active Substance: CIPROFLOXACIN
     Indication: PNEUMONIA
  6. PACLITAXEL/PACLITAXEL LIPOSOME [Interacting]
     Active Substance: PACLITAXEL
     Indication: NON-SMALL CELL LUNG CANCER
     Route: 042

REACTIONS (7)
  - Pneumonia [Recovered/Resolved]
  - Drug level increased [Unknown]
  - Device related infection [Recovered/Resolved]
  - Rash [Recovered/Resolved]
  - Infection [Unknown]
  - Acute kidney injury [Recovered/Resolved]
  - Drug interaction [Unknown]
